FAERS Safety Report 25088131 (Version 1)
Quarter: 2025Q1

REPORT INFORMATION
  Report Type: Spontaneous
  Country: US (occurrence: None)
  Receive Date: 20250317
  Receipt Date: 20250317
  Transmission Date: 20250409
  Serious: No
  Sender: FDA-CTU
  Company Number: None

PATIENT
  Sex: Male
  Weight: 0.0 kg

DRUGS (1)
  1. ADBRY [Suspect]
     Active Substance: TRALOKINUMAB-LDRM
     Indication: Dermatitis allergic
     Route: 058
     Dates: start: 20241122

REACTIONS (6)
  - Hypoaesthesia [None]
  - Eye disorder [None]
  - Paraesthesia [None]
  - Sinus disorder [None]
  - Productive cough [None]
  - Therapy interrupted [None]
